FAERS Safety Report 4459314-1 (Version None)
Quarter: 2004Q3

REPORT INFORMATION
  Report Type: 
  Country: None (occurrence: None)
  Receive Date: 20040923
  Receipt Date: 20040923
  Transmission Date: 20050211
  Serious: Yes (Death, Hospitalization)
  Sender: FDA-Public Use
  Company Number: None

PATIENT
  Age: 67 Year
  Sex: Male
  Weight: 112 kg

DRUGS (1)
  1. WARFARIN  5MG [Suspect]
     Indication: ATRIAL FIBRILLATION
     Dosage: 5 MG QD ORAL
     Route: 048
     Dates: start: 19990817, end: 20031209

REACTIONS (12)
  - ACUTE MYELOID LEUKAEMIA [None]
  - ASTHENIA [None]
  - BACTERIAL INFECTION [None]
  - CARDIO-RESPIRATORY ARREST [None]
  - COMA [None]
  - FALL [None]
  - MENTAL STATUS CHANGES [None]
  - PAIN [None]
  - PANCYTOPENIA [None]
  - PNEUMONIA NECROTISING [None]
  - POLYCYTHAEMIA VERA [None]
  - RESPIRATORY FAILURE [None]
